FAERS Safety Report 10261512 (Version 2)
Quarter: 2014Q2

REPORT INFORMATION
  Report Type: Spontaneous
  Country: US (occurrence: US)
  Receive Date: 20140626
  Receipt Date: 20140626
  Transmission Date: 20141212
  Serious: No
  Sender: FDA-Public Use
  Company Number: US-MYLANLABS-2013S1020854

PATIENT
  Age: 92 Year
  Sex: Male
  Weight: 74.84 kg

DRUGS (8)
  1. PERFOROMIST (FORMOTEROL FUMARATE) INHALATION SOLUTION [Suspect]
     Indication: CHRONIC OBSTRUCTIVE PULMONARY DISEASE
     Route: 055
     Dates: start: 2012
  2. NIASPAN [Concomitant]
     Indication: BLOOD CHOLESTEROL INCREASED
     Route: 048
  3. CRESTOR [Concomitant]
     Indication: BLOOD CHOLESTEROL INCREASED
     Route: 048
  4. PREDNISONE [Concomitant]
     Route: 048
  5. ASA [Concomitant]
     Indication: MYOCARDIAL INFARCTION
  6. METOPROLOL [Concomitant]
     Indication: BLOOD PRESSURE INCREASED
     Route: 048
  7. VITAMINS [Concomitant]
     Indication: VITAMIN SUPPLEMENTATION
     Route: 048
  8. ALPRAZOLAM [Concomitant]
     Indication: INSOMNIA
     Route: 048

REACTIONS (4)
  - Chest pain [Not Recovered/Not Resolved]
  - Blood glucose increased [Not Recovered/Not Resolved]
  - Unevaluable event [Not Recovered/Not Resolved]
  - Asthenia [Not Recovered/Not Resolved]
